FAERS Safety Report 16687203 (Version 2)
Quarter: 2019Q3

REPORT INFORMATION
  Report Type: Report from Study
  Country: BR (occurrence: BR)
  Receive Date: 20190809
  Receipt Date: 20190822
  Transmission Date: 20191004
  Serious: Yes (Other)
  Sender: FDA-Public Use
  Company Number: BR-TEVA-2019-BR-1065944

PATIENT
  Sex: Female

DRUGS (6)
  1. PYRIDIUM [Concomitant]
     Active Substance: PHENAZOPYRIDINE
     Route: 065
  2. AMITRIPTYLINE [Concomitant]
     Active Substance: AMITRIPTYLINE
     Dosage: 15 MILLIGRAM DAILY; 1 TAB OF 15MG DAILY AT NIGHT
     Route: 065
  3. HIDROXIZINE [Concomitant]
     Dosage: 100 MILLIGRAM DAILY; 1 TAB OF 50MGEVERY 12 HOURS
     Route: 065
  4. PROPANOLOL HYDROCHLORIDE [Concomitant]
     Active Substance: PROPRANOLOL HYDROCHLORIDE
     Dosage: 40 MILLIGRAM DAILY;
     Route: 065
  5. COPAXONE [Suspect]
     Active Substance: GLATIRAMER ACETATE
     Indication: RELAPSING-REMITTING MULTIPLE SCLEROSIS
     Route: 065
     Dates: start: 201109
  6. ETHINYLESTRADIOL W/GESTODENE (SIBLIMA) [Concomitant]
     Route: 065

REACTIONS (8)
  - Injection site necrosis [Recovering/Resolving]
  - Toxic epidermal necrolysis [Recovering/Resolving]
  - Injection site pain [Not Recovered/Not Resolved]
  - Injection site nodule [Not Recovered/Not Resolved]
  - Injection site haemorrhage [Recovering/Resolving]
  - Injection site injury [Recovering/Resolving]
  - Injection site induration [Not Recovered/Not Resolved]
  - Injection site erythema [Not Recovered/Not Resolved]
